FAERS Safety Report 5846795-1 (Version None)
Quarter: 2008Q3

REPORT INFORMATION
  Report Type: 
  Country: None (occurrence: None)
  Receive Date: 20080815
  Receipt Date: 20080808
  Transmission Date: 20090109
  Serious: Yes (Disabling, Other)
  Sender: FDA-Public Use
  Company Number: US-BAXTER-2007BH000625

PATIENT
  Age: 67 Year
  Sex: Female
  Weight: 79 kg

DRUGS (19)
  1. PROMETHAZINE HCL [Suspect]
     Indication: NAUSEA
     Route: 042
     Dates: start: 20050112, end: 20050112
  2. PROMETHAZINE HCL [Suspect]
     Route: 042
     Dates: start: 20050113, end: 20050113
  3. PROMETHAZINE HCL [Suspect]
     Route: 042
     Dates: start: 20050113, end: 20050113
  4. PROMETHAZINE HCL [Suspect]
     Route: 042
     Dates: start: 20050114, end: 20050114
  5. PROMETHAZINE HCL [Suspect]
     Route: 042
     Dates: start: 20050114, end: 20050114
  6. PROMETHAZINE HCL [Suspect]
     Route: 042
     Dates: start: 20050114, end: 20050114
  7. PROMETHAZINE HCL [Suspect]
     Route: 042
     Dates: start: 20050115, end: 20050115
  8. PROMETHAZINE HCL [Suspect]
     Route: 042
     Dates: start: 20050115, end: 20050115
  9. PROMETHAZINE HCL [Suspect]
     Route: 042
     Dates: start: 20050115, end: 20050115
  10. PROMETHAZINE HCL [Suspect]
     Route: 042
     Dates: start: 20050115, end: 20050115
  11. PROMETHAZINE HCL [Suspect]
     Route: 042
     Dates: start: 20050116, end: 20050116
  12. GLUCOSE [Concomitant]
     Indication: DRUG USE FOR UNKNOWN INDICATION
     Route: 065
     Dates: start: 20050126
  13. HUMULIN R [Concomitant]
     Indication: BLOOD GLUCOSE
     Route: 058
     Dates: start: 20050126
  14. REPAGLINIDE [Concomitant]
     Indication: DRUG USE FOR UNKNOWN INDICATION
     Route: 048
     Dates: start: 20050112
  15. XANAX [Concomitant]
     Indication: DRUG USE FOR UNKNOWN INDICATION
     Route: 048
     Dates: start: 20050112, end: 20050118
  16. DOCUSATE SODIUM [Concomitant]
     Indication: DRUG USE FOR UNKNOWN INDICATION
     Route: 048
     Dates: start: 20050112
  17. DEMEROL [Concomitant]
     Indication: DRUG USE FOR UNKNOWN INDICATION
     Route: 042
     Dates: start: 20050112, end: 20050119
  18. VICODIN [Concomitant]
     Indication: DRUG USE FOR UNKNOWN INDICATION
     Route: 048
  19. FLONASE [Concomitant]
     Indication: DRUG USE FOR UNKNOWN INDICATION
     Route: 045

REACTIONS (6)
  - ACTIVITIES OF DAILY LIVING IMPAIRED [None]
  - ANXIETY [None]
  - EMOTIONAL DISTRESS [None]
  - INJECTION SITE REACTION [None]
  - LIMB INJURY [None]
  - PAIN [None]
